FAERS Safety Report 4359872-1 (Version None)
Quarter: 2004Q2

REPORT INFORMATION
  Report Type: 
  Country: None (occurrence: None)
  Receive Date: 20040513
  Receipt Date: 20040504
  Transmission Date: 20050107
  Serious: No
  Sender: FDA-Public Use
  Company Number: 2004PK00798

PATIENT
  Age: 22 Year
  Sex: Female

DRUGS (4)
  1. SEROQUEL [Suspect]
     Dosage: 500 MG DAILY PO
     Route: 048
  2. SEROQUEL [Suspect]
  3. MIRTAZAPINE [Concomitant]
  4. FLUPENTIXOL [Concomitant]

REACTIONS (2)
  - GRANULOCYTOPENIA [None]
  - LEUKOPENIA [None]
